FAERS Safety Report 15956056 (Version 1)
Quarter: 2019Q1

REPORT INFORMATION
  Report Type: Spontaneous
  Country: IT (occurrence: IT)
  Receive Date: 20190213
  Receipt Date: 20190213
  Transmission Date: 20190417
  Serious: Yes (Hospitalization)
  Sender: FDA-Public Use
  Company Number: IT-JNJFOC-20190214108

PATIENT
  Age: 18 Year
  Sex: Male

DRUGS (3)
  1. SERENASE (HALOPERIDOL) [Suspect]
     Active Substance: HALOPERIDOL
     Indication: SUBSTANCE ABUSE
     Route: 048
     Dates: start: 20181010, end: 20181010
  2. BRUFEN [Suspect]
     Active Substance: IBUPROFEN
     Indication: SUBSTANCE ABUSE
     Route: 048
     Dates: start: 20181010, end: 20181010
  3. PAROXETINE. [Suspect]
     Active Substance: PAROXETINE
     Indication: SUBSTANCE ABUSE
     Route: 065
     Dates: start: 20181010, end: 20181010

REACTIONS (5)
  - Product use in unapproved indication [Recovered/Resolved]
  - Malaise [Recovered/Resolved]
  - Off label use [Recovered/Resolved]
  - Substance abuse [Recovered/Resolved]
  - Somnolence [Recovered/Resolved]

NARRATIVE: CASE EVENT DATE: 20181010
